FAERS Safety Report 4469091-6 (Version None)
Quarter: 2004Q4

REPORT INFORMATION
  Report Type: 
  Country: None (occurrence: None)
  Receive Date: 20041008
  Receipt Date: 20040929
  Transmission Date: 20050328
  Serious: Yes (Hospitalization)
  Sender: FDA-Public Use
  Company Number: 200413058JP

PATIENT
  Age: 60 Year
  Sex: Male
  Weight: 68 kg

DRUGS (4)
  1. ARAVA [Suspect]
     Route: 048
     Dates: start: 20040318
  2. NEUROTROPIN [Concomitant]
     Route: 048
  3. NAIXAN [Concomitant]
     Route: 048
  4. PREDONINE [Concomitant]
     Route: 048

REACTIONS (10)
  - ABASIA [None]
  - BLOOD GLUCOSE INCREASED [None]
  - FEELING ABNORMAL [None]
  - GLYCOSYLATED HAEMOGLOBIN INCREASED [None]
  - HAEMOGLOBIN DECREASED [None]
  - LABORATORY TEST ABNORMAL [None]
  - MONOCYTE COUNT DECREASED [None]
  - POLYMYOSITIS [None]
  - RED BLOOD CELL COUNT DECREASED [None]
  - WHITE BLOOD CELL COUNT INCREASED [None]
